FAERS Safety Report 18189639 (Version 2)
Quarter: 2020Q3

REPORT INFORMATION
  Report Type: Spontaneous
  Country: ES (occurrence: ES)
  Receive Date: 20200824
  Receipt Date: 20200928
  Transmission Date: 20201103
  Serious: No
  Sender: FDA-Public Use
  Company Number: ES-JNJFOC-20200819665

PATIENT

DRUGS (3)
  1. DUROGESIC MATRIX [Suspect]
     Active Substance: FENTANYL
  2. DUROGESIC MATRIX [Suspect]
     Active Substance: FENTANYL
  3. DUROGESIC MATRIX [Suspect]
     Active Substance: FENTANYL
     Indication: PRODUCT USED FOR UNKNOWN INDICATION
     Dosage: STRENGTH: 50 MCG/HR
     Route: 062

REACTIONS (1)
  - Product adhesion issue [Unknown]
